FAERS Safety Report 7333478-4 (Version None)
Quarter: 2011Q1

REPORT INFORMATION
  Report Type: 
  Country: None (occurrence: None)
  Receive Date: 20110304
  Receipt Date: 20110223
  Transmission Date: 20110831
  Serious: Yes (Other)
  Sender: FDA-Public Use
  Company Number: IT-WATSON-2011-02388

PATIENT
  Age: 40 Year
  Sex: Male

DRUGS (2)
  1. CYCLOPHOSPHAMIDE [Suspect]
     Indication: UVEITIS
  2. CYCLOPHOSPHAMIDE [Suspect]
     Indication: ARTHRITIS
     Dosage: 3 MG/KG, DAILY- 3.5

REACTIONS (1)
  - BEHCET'S SYNDROME [None]
